FAERS Safety Report 19666837 (Version 1)
Quarter: 2021Q3

REPORT INFORMATION
  Report Type: Spontaneous
  Country: AF (occurrence: AF)
  Receive Date: 20210806
  Receipt Date: 20210806
  Transmission Date: 20211014
  Serious: Yes (Hospitalization)
  Sender: FDA-Public Use
  Company Number: None

PATIENT
  Sex: Female

DRUGS (13)
  1. LUPRON DEPOT [Suspect]
     Active Substance: LEUPROLIDE ACETATE
     Indication: ENDOMETRIOSIS
     Dosage: ?          OTHER FREQUENCY:MONTHLY;?
     Route: 029
     Dates: start: 20210316
  2. TRAMADOL. [Concomitant]
     Active Substance: TRAMADOL
  3. EZETIMIBE. [Concomitant]
     Active Substance: EZETIMIBE
  4. LORAZEPAM. [Concomitant]
     Active Substance: LORAZEPAM
  5. FLUOXETINE [Concomitant]
     Active Substance: FLUOXETINE HYDROCHLORIDE
  6. AMLOD/BENZAPRINE [Concomitant]
  7. AMLODIPINE [Concomitant]
     Active Substance: AMLODIPINE BESYLATE
  8. ATORVASTATIN [Concomitant]
     Active Substance: ATORVASTATIN
  9. GUANFACINE. [Concomitant]
     Active Substance: GUANFACINE
  10. LIDOCAINE. [Concomitant]
     Active Substance: LIDOCAINE
  11. QUETIAPINE. [Concomitant]
     Active Substance: QUETIAPINE
  12. NORETHIN ACE [Concomitant]
  13. DEXTROAMPHET SACCHARAT, AMPHET ASPARTATE, DEXTROAMPHET SULFATE AND AMPHET SULFAT [Concomitant]
     Active Substance: AMPHETAMINE ASPARTATE\AMPHETAMINE SULFATE\DEXTROAMPHETAMINE SACCHARATE\DEXTROAMPHETAMINE SULFATE

REACTIONS (2)
  - Mood swings [None]
  - Therapy cessation [None]
